FAERS Safety Report 5341301-2 (Version None)
Quarter: 2007Q3

REPORT INFORMATION
  Report Type: 
  Country: None (occurrence: None)
  Receive Date: 20070530
  Receipt Date: 20070518
  Transmission Date: 20080115
  Serious: No
  Sender: FDA-Public Use
  Company Number: 2007BI009130

PATIENT
  Age: 59 Year
  Sex: Female
  Weight: 79.8331 kg

DRUGS (17)
  1. AVONEX [Suspect]
     Indication: MULTIPLE SCLEROSIS
     Dosage: 30 UG;QW; ;IM
     Route: 030
     Dates: start: 19980101, end: 20030101
  2. AVONEX [Suspect]
     Indication: MULTIPLE SCLEROSIS
     Dosage: 30 UG;QW; ;IM
     Route: 030
     Dates: start: 20030101, end: 20060101
  3. AVONEX [Suspect]
     Indication: MULTIPLE SCLEROSIS
     Dosage: 30 UG;QW; IM
     Route: 030
     Dates: start: 20070226
  4. PAIN MEDICATION [Concomitant]
  5. LEXAPRO [Concomitant]
  6. ARICEPT [Concomitant]
  7. DIOVAN [Concomitant]
  8. LEVOTHROID [Concomitant]
  9. LEVBID [Concomitant]
  10. PRILOSEC [Concomitant]
  11. RHINOCORT [Concomitant]
  12. VYTORIN [Concomitant]
  13. TRICOR [Concomitant]
  14. BENADRYL [Concomitant]
  15. INHALERS (NOS) [Concomitant]
  16. VITAMIN CAP [Concomitant]
  17. ESTRADIOL [Concomitant]

REACTIONS (11)
  - EYE OPERATION [None]
  - FALL [None]
  - HEMIPARESIS [None]
  - HEPATITIS C [None]
  - HYPOAESTHESIA [None]
  - INFLUENZA LIKE ILLNESS [None]
  - RETINAL DETACHMENT [None]
  - SPLENIC NEOPLASM MALIGNANCY UNSPECIFIED [None]
  - SYSTEMIC LUPUS ERYTHEMATOSUS [None]
  - TUBERCULOSIS SKIN TEST POSITIVE [None]
  - URINARY INCONTINENCE [None]
